FAERS Safety Report 9257565 (Version 1)
Quarter: 2013Q1

REPORT INFORMATION
  Report Type: Spontaneous
  Country: US (occurrence: None)
  Receive Date: 20121212
  Receipt Date: 20121212
  Transmission Date: 20140127
  Serious: No
  Sender: FDA-Public Use
  Company Number: 1207USA009276

PATIENT
  Age: 30 Year
  Sex: Male
  Weight: 83.9 kg

DRUGS (7)
  1. VICTRELIS [Suspect]
     Dosage: 800 MG, TID (EVERY 7-9 HOURS WITH FOOD) ORAL
     Route: 048
  2. REBETOL [Suspect]
  3. PEGASYS [Suspect]
  4. ASCORBIC ACID (ASCORBIC ACID) [Concomitant]
  5. VITAMINS (UNSPECIFIED) [Concomitant]
  6. MINERALS (UNSPECIFIED) [Concomitant]
  7. BUPROPION HYDROCHLORIDE (BUPROPION HYDROCHLORIDE) [Concomitant]

REACTIONS (2)
  - Platelet count decreased [None]
  - Neutropenia [None]
